FAERS Safety Report 7805436-4 (Version None)
Quarter: 2011Q4

REPORT INFORMATION
  Report Type: 
  Country: None (occurrence: None)
  Receive Date: 20111010
  Receipt Date: 20111005
  Transmission Date: 20120403
  Serious: Yes (Hospitalization)
  Sender: FDA-Public Use
  Company Number: FR-GILEAD-2011-0044708

PATIENT
  Age: 49 Year
  Sex: Female

DRUGS (3)
  1. TRUVADA [Suspect]
     Indication: HIV INFECTION
     Dosage: 1 DF, UNK
     Route: 048
     Dates: start: 20110701, end: 20110708
  2. PREZISTA                           /05513801/ [Suspect]
     Indication: HIV INFECTION
     Dosage: 800 MG, UNK
     Route: 048
     Dates: start: 20110701, end: 20110708
  3. NORVIR [Suspect]
     Indication: HIV INFECTION
     Dosage: 100 MG, UNK
     Route: 048
     Dates: start: 20110701, end: 20110708

REACTIONS (5)
  - PYREXIA [None]
  - ANGIOEDEMA [None]
  - RASH PUSTULAR [None]
  - RASH MACULAR [None]
  - ERYTHEMA [None]
